FAERS Safety Report 21207097 (Version 1)
Quarter: 2022Q3

REPORT INFORMATION
  Report Type: Spontaneous
  Country: US (occurrence: None)
  Receive Date: 20220811
  Receipt Date: 20220811
  Transmission Date: 20221027
  Serious: No
  Sender: FDA-Public Use
  Company Number: None

PATIENT
  Sex: Female
  Weight: 69.4 kg

DRUGS (6)
  1. ROZLYTREK [Suspect]
     Active Substance: ENTRECTINIB
     Indication: Breast cancer female
     Dosage: 600 MG DAILY ORAL?
     Route: 048
     Dates: start: 20220611
  2. DRAMAMINE [Concomitant]
     Active Substance: DIMENHYDRINATE
  3. KLOR-CON [Concomitant]
     Active Substance: POTASSIUM CHLORIDE
  4. MORPHINE [Concomitant]
     Active Substance: MORPHINE
  5. NALOXONE [Concomitant]
     Active Substance: NALOXONE
  6. ONDANSETRON [Concomitant]
     Active Substance: ONDANSETRON

REACTIONS (1)
  - Hospice care [None]
